FAERS Safety Report 9354404 (Version 2)
Quarter: 2013Q3

REPORT INFORMATION
  Report Type: Spontaneous
  Country: US (occurrence: US)
  Receive Date: 20130618
  Receipt Date: 20130912
  Transmission Date: 20140515
  Serious: No
  Sender: FDA-Public Use
  Company Number: US-009507513-1306USA006496

PATIENT
  Age: 88 Year
  Sex: Male
  Weight: 77.98 kg

DRUGS (6)
  1. MIRALAX [Suspect]
     Indication: CONSTIPATION
     Dosage: 17 G, QPM
     Route: 048
     Dates: start: 2011
  2. MIRALAX [Suspect]
     Indication: ABDOMINAL DISTENSION
  3. MIRALAX [Suspect]
     Indication: FLATULENCE
  4. MIRALAX [Suspect]
     Indication: ABDOMINAL PAIN
  5. MIRALAX [Suspect]
     Indication: MEDICAL OBSERVATION
  6. DULCOLAX [Concomitant]
     Indication: PRODUCT USED FOR UNKNOWN INDICATION

REACTIONS (3)
  - Flatulence [Recovered/Resolved]
  - Constipation [Recovered/Resolved]
  - Incorrect drug administration duration [Unknown]
